FAERS Safety Report 6774549-0 (Version None)
Quarter: 2010Q2

REPORT INFORMATION
  Report Type: 
  Country: None (occurrence: None)
  Receive Date: 20100617
  Receipt Date: 20091217
  Transmission Date: 20101027
  Serious: No
  Sender: FDA-Public Use
  Company Number: A0835642A

PATIENT
  Sex: Male

DRUGS (2)
  1. ZYBAN [Suspect]
     Dosage: 150MG TWICE PER DAY
     Route: 048
     Dates: start: 20091216
  2. NO CONCURRENT MEDICATION [Concomitant]

REACTIONS (2)
  - INSOMNIA [None]
  - OVERDOSE [None]
